FAERS Safety Report 5878154-X (Version None)
Quarter: 2008Q3

REPORT INFORMATION
  Report Type: 
  Country: None (occurrence: None)
  Receive Date: 20080911
  Receipt Date: 20080903
  Transmission Date: 20090109
  Serious: Yes (Hospitalization, Other)
  Sender: FDA-Public Use
  Company Number: FR-BRISTOL-MYERS SQUIBB COMPANY-14325526

PATIENT
  Age: 66 Year
  Sex: Male
  Weight: 80 kg

DRUGS (11)
  1. DAFALGAN CAPS 500 MG [Suspect]
     Route: 048
     Dates: start: 20080611
  2. ENDOXAN [Suspect]
     Dosage: TAKEN 68,4048 MG/D; OVER 21 DAYS
  3. FASTURTEC [Suspect]
     Dosage: STRENGTH: 1.5MG/ML
     Dates: start: 20080611
  4. DOXORUBICIN HYDROCHLORIDE [Suspect]
     Dosage: OVER 21 DAYS
     Dates: start: 20080611
  5. ONCOVIN [Suspect]
     Dosage: 2.7 MG OVER 21 DAYS
     Dates: start: 20080611
  6. MABTHERA [Suspect]
     Dosage: 718.3 MG OVER 21 DAYS
     Dates: start: 20080611
  7. CORTANCYL [Suspect]
     Dates: start: 20080612, end: 20080615
  8. SOLU-MEDROL [Suspect]
     Dates: start: 20080611
  9. KYTRIL [Concomitant]
     Dates: start: 20080611
  10. POLARAMINE [Concomitant]
     Dosage: POLARAMINE RETARD
  11. DEXTROSE 5% [Concomitant]
     Dosage: 5% SOLUTION
     Dates: start: 20080611

REACTIONS (4)
  - FEBRILE BONE MARROW APLASIA [None]
  - GLUCOSE-6-PHOSPHATE DEHYDROGENASE DEFICIENCY [None]
  - ISCHAEMIC STROKE [None]
  - METHAEMOGLOBINAEMIA [None]
